FAERS Safety Report 9733860 (Version 2)
Quarter: 2013Q4

REPORT INFORMATION
  Report Type: Report from Study
  Country: GT (occurrence: GT)
  Receive Date: 20131205
  Receipt Date: 20131205
  Transmission Date: 20140711
  Serious: Yes (Hospitalization)
  Sender: FDA-Public Use
  Company Number: GT-JNJFOC-20110203131

PATIENT
  Age: 52 Year
  Sex: Male
  Weight: 81.8 kg

DRUGS (2)
  1. JNJ-28431754 [Suspect]
     Route: 048
  2. JNJ-28431754 [Suspect]
     Indication: TYPE 2 DIABETES MELLITUS
     Route: 048
     Dates: start: 20101122

REACTIONS (1)
  - Urinary tract infection [Recovering/Resolving]
